FAERS Safety Report 10338861 (Version 4)
Quarter: 2015Q2

REPORT INFORMATION
  Report Type: Spontaneous
  Country: US (occurrence: US)
  Receive Date: 20140724
  Receipt Date: 20150501
  Transmission Date: 20150821
  Serious: Yes (Other)
  Sender: FDA-Public Use
  Company Number: US-BAYER-2014-110273

PATIENT
  Age: 26 Year
  Sex: Female

DRUGS (4)
  1. RANITIDINE [Concomitant]
     Active Substance: RANITIDINE\RANITIDINE HYDROCHLORIDE
     Dosage: 150 MG, BID
     Dates: start: 20130721
  2. MIRENA [Suspect]
     Active Substance: LEVONORGESTREL
     Indication: CONTRACEPTION
     Dosage: 20 MCG/24HR, CONT
     Route: 015
     Dates: start: 200902, end: 2011
  3. FERROUS SULFATE [Concomitant]
     Active Substance: FERROUS SULFATE\FERROUS SULFATE, DRIED
     Dosage: 325 MG, QD
     Route: 048
     Dates: start: 20130621
  4. MIRENA [Suspect]
     Active Substance: LEVONORGESTREL
     Indication: CONTRACEPTION
     Dosage: 20 MCG/24HR, CONT
     Route: 015
     Dates: start: 20130809, end: 20131026

REACTIONS (16)
  - Uterine infection [None]
  - Gastric disorder [None]
  - Off label use [None]
  - Emotional distress [None]
  - Flatulence [None]
  - Infrequent bowel movements [None]
  - Medical device pain [None]
  - Abdominal pain upper [None]
  - Anxiety [None]
  - Embedded device [None]
  - Injury [None]
  - Dyspnoea [None]
  - Device dislocation [None]
  - Device dislocation [None]
  - Pelvic pain [None]
  - Depression [None]

NARRATIVE: CASE EVENT DATE: 2011
